FAERS Safety Report 9799210 (Version 1)
Quarter: 2014Q1

REPORT INFORMATION
  Report Type: Spontaneous
  Country: US (occurrence: None)
  Receive Date: 20140103
  Receipt Date: 20140103
  Transmission Date: 20141002
  Serious: Yes (Hospitalization, Disabling)
  Sender: FDA-Public Use
  Company Number: None

PATIENT
  Age: 67 Year
  Sex: Female
  Weight: 65.77 kg

DRUGS (4)
  1. BETASERON (INTERFERON BETA-7B) FOR SC INJECTION BAYER HEALTH CARE PHARMACEUTICALS INC. [Suspect]
     Indication: MULTIPLE SCLEROSIS RELAPSE
     Dates: start: 200708, end: 20131118
  2. TRAMADOL [Concomitant]
  3. LISINOPRIL [Concomitant]
  4. CALCIUM 600 WITH VIT D [Concomitant]

REACTIONS (13)
  - Joint swelling [None]
  - Local swelling [None]
  - Vulvovaginal swelling [None]
  - Swelling [None]
  - Contusion [None]
  - Haemorrhage [None]
  - Abdominal pain upper [None]
  - Urinary incontinence [None]
  - Blister [None]
  - Pruritus [None]
  - Joint swelling [None]
  - Skin discolouration [None]
  - Local swelling [None]
